FAERS Safety Report 23570914 (Version 1)
Quarter: 2024Q1

REPORT INFORMATION
  Report Type: Spontaneous
  Country: US (occurrence: None)
  Receive Date: 20240226
  Receipt Date: 20240226
  Transmission Date: 20240410
  Serious: Yes (Congenital Anomaly)
  Sender: FDA-Public Use
  Company Number: None

PATIENT
  Age: 36 Year
  Sex: Female
  Weight: 78.75 kg

DRUGS (3)
  1. OZEMPIC [Suspect]
     Active Substance: SEMAGLUTIDE
     Indication: Type 2 diabetes mellitus
     Dosage: 0.5 MG ONCE WEEKLY SUBCUTANEOUS
     Route: 058
     Dates: start: 20221114, end: 20231223
  2. SEMAGLUTIDE [Suspect]
     Active Substance: SEMAGLUTIDE
     Dosage: ORAL
  3. TRULICITY [Suspect]
     Active Substance: DULAGLUTIDE
     Indication: Type 2 diabetes mellitus
     Dosage: 0.75 MG ONCE WEEKLY SUBCUTANEOUS
     Route: 058
     Dates: start: 20230410, end: 20230505

REACTIONS (20)
  - Influenza like illness [None]
  - Nausea [None]
  - Vomiting [None]
  - Diarrhoea [None]
  - Drug intolerance [None]
  - Maternal exposure during pregnancy [None]
  - Congenital anomaly [None]
  - Brain malformation [None]
  - Pulmonary hypoplasia [None]
  - Congenital musculoskeletal disorder of spine [None]
  - Congenital musculoskeletal disorder [None]
  - Congenital cystic kidney disease [None]
  - VACTERL syndrome [None]
  - Patent ductus arteriosus [None]
  - Pulmonary hypertension [None]
  - Polyhydramnios [None]
  - Oligohydramnios [None]
  - Caesarean section [None]
  - Blood pressure abnormal [None]
  - Low birth weight baby [None]

NARRATIVE: CASE EVENT DATE: 20231127
